FAERS Safety Report 8881922 (Version 3)
Quarter: 2014Q2

REPORT INFORMATION
  Report Type: Spontaneous
  Country: US (occurrence: US)
  Receive Date: 20121101
  Receipt Date: 20131018
  Transmission Date: 20141212
  Serious: Yes (Other)
  Sender: FDA-Public Use
  Company Number: US-PFIZER INC-2012269344

PATIENT
  Sex: Male

DRUGS (2)
  1. DILANTIN-125 [Suspect]
     Dosage: TOTAL DOSE OF 400 MG IN A DAY
  2. TYLENOL [Suspect]
     Indication: PAIN
     Dosage: UNK
     Dates: start: 2011

REACTIONS (3)
  - Surgery [Unknown]
  - Liver function test abnormal [Unknown]
  - Drug level decreased [Unknown]
